FAERS Safety Report 7591783-0 (Version None)
Quarter: 2011Q3

REPORT INFORMATION
  Report Type: 
  Country: None (occurrence: None)
  Receive Date: 20110701
  Receipt Date: 20110701
  Transmission Date: 20111222
  Serious: Yes (Hospitalization)
  Sender: FDA-Public Use
  Company Number: None

PATIENT
  Sex: Female
  Weight: 64.9 kg

DRUGS (17)
  1. CIPRO [Concomitant]
  2. MAGNESIUM OXIDE -MAG-OX- [Concomitant]
  3. MULTIPLE VITAMIN -MULTIVITAMIN- [Concomitant]
  4. ZOVIRAX [Concomitant]
  5. MIRALAX [Concomitant]
  6. VELCADE [Suspect]
     Indication: B-CELL LYMPHOMA REFRACTORY
     Dosage: 1.6 MG/M2 DAYS 1, 8, 15, 22 IV
     Route: 042
     Dates: start: 20110616, end: 20110624
  7. VELCADE [Suspect]
     Indication: B-CELL LYMPHOMA RECURRENT
     Dosage: 1.6 MG/M2 DAYS 1, 8, 15, 22 IV
     Route: 042
     Dates: start: 20110616, end: 20110624
  8. TEMSIROLIMUS [Suspect]
     Indication: B-CELL LYMPHOMA RECURRENT
     Dosage: 25 MG DAYS1, 8, 15, 22 + 29  IV
     Route: 042
     Dates: start: 20110616, end: 20110624
  9. TEMSIROLIMUS [Suspect]
     Indication: B-CELL LYMPHOMA REFRACTORY
     Dosage: 25 MG DAYS1, 8, 15, 22 + 29  IV
     Route: 042
     Dates: start: 20110616, end: 20110624
  10. OXYCODONE, IMMEDIATE RELEASE, -ROXICODONE [Concomitant]
  11. SENNA/DOCUSATE -SENOKOT-S- [Concomitant]
  12. MORPHINE ER - MS CONTIN- [Concomitant]
  13. PROTONIX [Concomitant]
  14. PROCHLORPERAZINE -COMPAZINE- [Concomitant]
  15. MORPHINE CR -MS CONTIN- [Concomitant]
  16. DECADRON [Concomitant]
  17. ZOFRAN [Concomitant]

REACTIONS (9)
  - ASTHENIA [None]
  - NEUTROPENIA [None]
  - PYREXIA [None]
  - VOMITING [None]
  - TACHYCARDIA [None]
  - DIARRHOEA [None]
  - CLOSTRIDIAL INFECTION [None]
  - NAUSEA [None]
  - ABDOMINAL PAIN [None]
